FAERS Safety Report 23150384 (Version 2)
Quarter: 2023Q4

REPORT INFORMATION
  Report Type: Spontaneous
  Country: CN (occurrence: CN)
  Receive Date: 20231106
  Receipt Date: 20231109
  Transmission Date: 20240109
  Serious: Yes (Hospitalization, Other)
  Sender: FDA-Public Use
  Company Number: CN-009507513-2311CHN001432

PATIENT
  Age: 40 Year
  Sex: Female
  Weight: 64 kg

DRUGS (7)
  1. EMEND [Suspect]
     Active Substance: APREPITANT
     Indication: Chemotherapy
     Dosage: 1 CAPSULE, ONCE, ORAL
     Route: 048
     Dates: start: 20231017, end: 20231017
  2. TAXOTERE [Suspect]
     Active Substance: DOCETAXEL
     Indication: Chemotherapy
     Dosage: 120 MG, ONCE, IV DRIP
     Route: 041
     Dates: start: 20231017, end: 20231017
  3. CARBOPLATIN [Suspect]
     Active Substance: CARBOPLATIN
     Indication: Chemotherapy
     Dosage: 0.7 G, ONCE, IV DRIP
     Route: 041
     Dates: start: 20231017, end: 20231017
  4. HERCEPTIN [Suspect]
     Active Substance: TRASTUZUMAB
     Indication: Chemotherapy
     Dosage: 504 MG, ONCE, IV DRIP
     Route: 041
     Dates: start: 20231017, end: 20231017
  5. SODIUM CHLORIDE [Concomitant]
     Active Substance: SODIUM CHLORIDE
     Indication: Medication dilution
     Dosage: 250 ML, ONCE, IV DRIP
     Route: 041
     Dates: start: 20231017, end: 20231017
  6. SODIUM CHLORIDE [Concomitant]
     Active Substance: SODIUM CHLORIDE
     Dosage: 250 ML, ONCE, IV DRIP
     Route: 041
     Dates: start: 20231017, end: 20231017
  7. DEXTROSE [Concomitant]
     Active Substance: DEXTROSE\DEXTROSE MONOHYDRATE
     Indication: Medication dilution
     Dosage: 500 ML, ONCE, IV DRIP
     Route: 041
     Dates: start: 20231017, end: 20231017

REACTIONS (4)
  - Myelosuppression [Recovering/Resolving]
  - Gastrointestinal motility disorder [Recovering/Resolving]
  - Rash pruritic [Recovering/Resolving]
  - Product use in unapproved indication [Unknown]

NARRATIVE: CASE EVENT DATE: 20231017
